FAERS Safety Report 9835557 (Version 4)
Quarter: 2014Q2

REPORT INFORMATION
  Report Type: Report from Study
  Country: DE (occurrence: DE)
  Receive Date: 20140122
  Receipt Date: 20140402
  Transmission Date: 20141212
  Serious: Yes (Death, Hospitalization, Other)
  Sender: FDA-Public Use
  Company Number: PHHY2014DE006865

PATIENT
  Sex: Male
  Weight: 76 kg

DRUGS (7)
  1. AMN107 [Suspect]
     Indication: CHRONIC MYELOID LEUKAEMIA
     Dosage: 800 MG, DAILY
     Route: 048
     Dates: start: 20090212, end: 20090512
  2. AMN107 [Suspect]
     Dosage: 800 MG, DAY
     Route: 048
     Dates: start: 20090303, end: 20090512
  3. AMN107 [Suspect]
     Dosage: 400 MG, DAY
     Route: 048
     Dates: start: 20090512
  4. AMN107 [Suspect]
     Dosage: 400 MG, DAY
     Route: 048
     Dates: start: 20090522
  5. AMN107 [Suspect]
     Dosage: 400 MG, DAY
     Route: 048
     Dates: start: 20090828
  6. AMN107 [Suspect]
     Dosage: 400 MG, DAY
     Route: 048
     Dates: end: 20100419
  7. AMN107 [Suspect]
     Dosage: 400 MG, DAY
     Route: 048
     Dates: start: 20100423, end: 20100424

REACTIONS (20)
  - Blast crisis in myelogenous leukaemia [Fatal]
  - Cerebral haemorrhage [Fatal]
  - Generalised oedema [Unknown]
  - Atrial fibrillation [Not Recovered/Not Resolved]
  - Mitral valve incompetence [Unknown]
  - Tricuspid valve incompetence [Unknown]
  - Circulatory collapse [Unknown]
  - Splenomegaly [Unknown]
  - Platelet count decreased [Not Recovered/Not Resolved]
  - Concomitant disease aggravated [Not Recovered/Not Resolved]
  - Pyrexia [Recovered/Resolved]
  - Chronic myeloid leukaemia [Not Recovered/Not Resolved]
  - Pleural effusion [Unknown]
  - Lung infiltration [Unknown]
  - Dermatitis bullous [Recovered/Resolved]
  - Rash [Recovered/Resolved]
  - Granuloma [Unknown]
  - Infection [Unknown]
  - Back pain [Unknown]
  - Disturbance in attention [Unknown]
